FAERS Safety Report 14448822 (Version 2)
Quarter: 2018Q2

REPORT INFORMATION
  Report Type: Report from Study
  Country: US (occurrence: US)
  Receive Date: 20180126
  Receipt Date: 20180427
  Transmission Date: 20180711
  Serious: Yes (Death, Hospitalization, Other)
  Sender: FDA-Public Use
  Company Number: US-BRISTOL-MYERS SQUIBB COMPANY-BMS-2018-006390

PATIENT
  Age: 37 Year
  Sex: Female
  Weight: 119.2 kg

DRUGS (3)
  1. METFORMIN [Concomitant]
     Active Substance: METFORMIN HYDROCHLORIDE
     Indication: PRODUCT USED FOR UNKNOWN INDICATION
     Route: 065
  2. NIVOLUMAB [Suspect]
     Active Substance: NIVOLUMAB
     Indication: OVARIAN GRANULOSA CELL TUMOUR
     Dosage: 240 MG, UNK
     Route: 042
     Dates: start: 20170808
  3. IPILIMUMAB [Suspect]
     Active Substance: IPILIMUMAB
     Indication: OVARIAN GRANULOSA CELL TUMOUR
     Dosage: 1 MG/KG, UNK
     Route: 042
     Dates: start: 20170808

REACTIONS (7)
  - Multiple organ dysfunction syndrome [Fatal]
  - Acidosis [Unknown]
  - Embolism [Not Recovered/Not Resolved]
  - Hepatic failure [Unknown]
  - Platelet count decreased [Not Recovered/Not Resolved]
  - Alanine aminotransferase increased [Unknown]
  - Aspartate aminotransferase increased [Unknown]

NARRATIVE: CASE EVENT DATE: 20180109
